FAERS Safety Report 10350363 (Version 1)
Quarter: 2014Q3

REPORT INFORMATION
  Report Type: Report from Study
  Country: US (occurrence: US)
  Receive Date: 20140730
  Receipt Date: 20140730
  Transmission Date: 20150326
  Serious: No
  Sender: FDA-Public Use
  Company Number: US-ABBVIE-13P-163-1127314-00

PATIENT
  Sex: Female

DRUGS (1)
  1. NIASPAN ER [Suspect]
     Active Substance: NIACIN
     Indication: BLOOD CHOLESTEROL ABNORMAL
     Dosage: TAKEN AT NIGHT
     Dates: start: 20130726, end: 20130727

REACTIONS (2)
  - Paraesthesia [Recovered/Resolved]
  - Pain [Recovered/Resolved]
